FAERS Safety Report 9069366 (Version 1)
Quarter: 2013Q1

REPORT INFORMATION
  Report Type: Spontaneous
  Country: US (occurrence: US)
  Receive Date: 20130215
  Receipt Date: 20130215
  Transmission Date: 20140127
  Serious: Yes (Death)
  Sender: FDA-Public Use
  Company Number: US-BANPHARM-20130829

PATIENT
  Age: 38 Year
  Sex: Male

DRUGS (8)
  1. DIPHENHYDRAMINE [Suspect]
     Route: 048
  2. BENZODIAZEPINE [Suspect]
     Route: 048
  3. ZIPRASIDONE [Suspect]
     Route: 048
  4. QUETIAPINE [Suspect]
     Route: 048
  5. QUETIAPINE [Suspect]
     Route: 048
  6. DULOXETINE [Suspect]
     Route: 048
  7. LAMOTRIGINE [Suspect]
     Route: 048
  8. MIRTAZAPINE [Suspect]
     Route: 048

REACTIONS (1)
  - Completed suicide [Fatal]
